FAERS Safety Report 11282802 (Version 1)
Quarter: 2015Q3

REPORT INFORMATION
  Report Type: Spontaneous
  Country: US (occurrence: None)
  Receive Date: 20150717
  Receipt Date: 20150717
  Transmission Date: 20151125
  Serious: Yes (Hospitalization)
  Sender: FDA-Public Use
  Company Number: None

PATIENT
  Age: 63 Year
  Sex: Male
  Weight: 75.9 kg

DRUGS (1)
  1. SAXAGLIPTIN [Suspect]
     Active Substance: SAXAGLIPTIN
     Indication: DIABETES MELLITUS
     Route: 048
     Dates: start: 20150226, end: 20150402

REACTIONS (5)
  - Dyspnoea [None]
  - Cardiac failure [None]
  - Hypertensive crisis [None]
  - Oedema [None]
  - Weight increased [None]

NARRATIVE: CASE EVENT DATE: 20150325
